FAERS Safety Report 5170471-4 (Version None)
Quarter: 2006Q4

REPORT INFORMATION
  Report Type: 
  Country: None (occurrence: None)
  Receive Date: 20061204
  Receipt Date: 20061123
  Transmission Date: 20070319
  Serious: Yes (Other)
  Sender: FDA-Public Use
  Company Number: 2006145037

PATIENT
  Age: 88 Year
  Sex: Female

DRUGS (1)
  1. LYRICA [Suspect]
     Indication: NEURITIS
     Dosage: 300 MG (150 MG, 2 IN 1 D)

REACTIONS (2)
  - FALL [None]
  - VERTIGO [None]
